FAERS Safety Report 9729496 (Version 2)
Quarter: 2015Q3

REPORT INFORMATION
  Report Type: Spontaneous
  Country: US (occurrence: US)
  Receive Date: 20131204
  Receipt Date: 20150804
  Transmission Date: 20151125
  Serious: No
  Sender: FDA-Public Use
  Company Number: US-GILEAD-2009-0022031

PATIENT
  Age: 73 Year
  Sex: Female
  Weight: 77.11 kg

DRUGS (8)
  1. BL CALCIUM 500 [Concomitant]
  2. LETAIRIS [Suspect]
     Active Substance: AMBRISENTAN
     Indication: PULMONARY ARTERIAL HYPERTENSION
     Route: 048
     Dates: start: 20071102
  3. METOCLOPRAMIDE. [Concomitant]
     Active Substance: METOCLOPRAMIDE
  4. COUMADIN [Concomitant]
     Active Substance: WARFARIN SODIUM
  5. REVATIO [Concomitant]
     Active Substance: SILDENAFIL CITRATE
  6. ALLEGRA-D 12 HOUR [Concomitant]
  7. EFFEXOR [Concomitant]
     Active Substance: VENLAFAXINE HYDROCHLORIDE
  8. DIOVAN [Concomitant]
     Active Substance: VALSARTAN

REACTIONS (1)
  - Diarrhoea [Unknown]

NARRATIVE: CASE EVENT DATE: 200904
